FAERS Safety Report 9237263 (Version 2)
Quarter: 2013Q3

REPORT INFORMATION
  Report Type: Spontaneous
  Country: JP (occurrence: JP)
  Receive Date: 20130417
  Receipt Date: 20130711
  Transmission Date: 20140515
  Serious: Yes (Other)
  Sender: FDA-Public Use
  Company Number: JP-UCBSA-082749

PATIENT
  Sex: Male

DRUGS (1)
  1. E KEPPRA [Suspect]
     Dosage: UNKNOWN DOSE
     Route: 048

REACTIONS (1)
  - Aplasia pure red cell [Recovered/Resolved]
